FAERS Safety Report 22650143 (Version 1)
Quarter: 2023Q2

REPORT INFORMATION
  Report Type: Spontaneous
  Country: US (occurrence: US)
  Receive Date: 20230628
  Receipt Date: 20230628
  Transmission Date: 20230721
  Serious: Yes (Life-Threatening, Hospitalization)
  Sender: FDA-Public Use
  Company Number: US-MYLANLABS-2023M1068302

PATIENT
  Age: 43 Year
  Sex: Male

DRUGS (1)
  1. ADALIMUMAB [Suspect]
     Active Substance: ADALIMUMAB
     Indication: Ankylosing spondylitis
     Dosage: UNK
     Route: 065

REACTIONS (5)
  - Legionella infection [Recovering/Resolving]
  - Acute respiratory failure [Recovering/Resolving]
  - Acute kidney injury [Recovering/Resolving]
  - Shock [Recovering/Resolving]
  - Rhabdomyolysis [Recovering/Resolving]
